FAERS Safety Report 9629788 (Version 1)
Quarter: 2013Q4

REPORT INFORMATION
  Report Type: Spontaneous
  Country: TR (occurrence: TR)
  Receive Date: 20131017
  Receipt Date: 20131017
  Transmission Date: 20140711
  Serious: Yes (Other)
  Sender: FDA-Public Use
  Company Number: TR-BAYER-2013-122391

PATIENT
  Age: 3 Year
  Sex: Male

DRUGS (5)
  1. IBUPROFEN [Suspect]
     Dosage: 100 MG, UNK
  2. PARACETAMOL [Suspect]
     Dosage: (12.5 MG/KG)
  3. KETOPROFEN (SYSTEMIC FORMULATION) [Suspect]
     Dosage: 5 MG, UNK
  4. KETOPROFEN (SYSTEMIC FORMULATION) [Suspect]
     Dosage: 5 MG, UNK
  5. METAMIZOLE SODIUM [Suspect]
     Indication: PYREXIA

REACTIONS (1)
  - Angioedema [None]
